FAERS Safety Report 17841476 (Version 5)
Quarter: 2020Q2

REPORT INFORMATION
  Report Type: Spontaneous
  Country: US (occurrence: US)
  Receive Date: 20200529
  Receipt Date: 20200610
  Transmission Date: 20200714
  Serious: Yes (Hospitalization)
  Sender: FDA-Public Use
  Company Number: US-PFIZER INC-2020211030

PATIENT
  Age: 77 Year
  Sex: Male
  Weight: 83.46 kg

DRUGS (3)
  1. ZOSYN [Suspect]
     Active Substance: PIPERACILLIN SODIUM\TAZOBACTAM SODIUM
     Dosage: 4.5 G,  INFUSION EVERY 8 HOURS
     Dates: start: 20200520, end: 20200602
  2. ZOSYN [Suspect]
     Active Substance: PIPERACILLIN SODIUM\TAZOBACTAM SODIUM
     Indication: PSEUDOMONAS INFECTION
     Dosage: UNK
  3. ZOSYN [Suspect]
     Active Substance: PIPERACILLIN SODIUM\TAZOBACTAM SODIUM
     Indication: PNEUMONIA PSEUDOMONAL
     Dosage: 4.5 G, 3X/DAY(4.5G Q (EVERY) 8 HOURS)
     Dates: start: 202005

REACTIONS (16)
  - Tongue disorder [Unknown]
  - Therapeutic product effect incomplete [Unknown]
  - Malaise [Unknown]
  - Gait disturbance [Unknown]
  - Feeding disorder [Unknown]
  - Asthenia [Unknown]
  - Peripheral swelling [Recovered/Resolved]
  - Blood urea nitrogen/creatinine ratio increased [Unknown]
  - Abdominal discomfort [Unknown]
  - Lacrimation increased [Unknown]
  - Heart rate increased [Recovered/Resolved]
  - Renal impairment [Unknown]
  - Productive cough [Recovered/Resolved]
  - Dyspnoea [Recovering/Resolving]
  - Chronic obstructive pulmonary disease [Unknown]
  - Blood creatinine decreased [Unknown]

NARRATIVE: CASE EVENT DATE: 20200511
